FAERS Safety Report 4290025-1 (Version None)
Quarter: 2004Q1

REPORT INFORMATION
  Report Type: 
  Country: None (occurrence: None)
  Receive Date: 20040209
  Receipt Date: 20030618
  Transmission Date: 20041129
  Serious: Yes (Hospitalization, Other)
  Sender: FDA-Public Use
  Company Number: USA030432879

PATIENT
  Age: 77 Year
  Sex: Female
  Weight: 63 kg

DRUGS (3)
  1. EVISTA [Suspect]
     Indication: OSTEOPOROSIS PROPHYLAXIS
     Dosage: 60MG/DAY
     Dates: start: 19990301, end: 20030221
  2. CALTRATE [Concomitant]
  3. HYDREA [Concomitant]

REACTIONS (1)
  - DEEP VEIN THROMBOSIS [None]
